FAERS Safety Report 8811969 (Version 1)
Quarter: 2012Q4

REPORT INFORMATION
  Report Type: Spontaneous
  Country: SE (occurrence: None)
  Receive Date: 20120924
  Receipt Date: 20120924
  Transmission Date: 20130627
  Serious: Yes (Disabling)
  Sender: FDA-Public Use
  Company Number: 2012-4056

PATIENT
  Age: 58 Year
  Sex: Female

DRUGS (9)
  1. DYSPORT [Suspect]
     Indication: DYSTONIA
     Dosage: 1300 units (1300 units, 1 in 1 cycle(s)), Intramuscular
     Route: 030
     Dates: end: 20120312
  2. DYSPORT [Suspect]
     Indication: DYSTONIA
     Dosage: 950 units (950 units, 1 in 1 cycle (s)), intramuscular
     Route: 030
     Dates: start: 20100419
  3. CITALOPRAM (CITALOPRAM) [Concomitant]
  4. ZANTAC (RANITIDINE HYDROCHLORIDE) [Concomitant]
  5. PRIMPERAN (METOCLOPRAMIDE) [Concomitant]
  6. GAVISCON (GAVISCON /00237601/) [Concomitant]
  7. CILAXORAL (SODIUM PICOSULFATE) [Concomitant]
  8. MOXALATE (ALL OTHER THERAPEUTIC PRODUCTS) [Concomitant]
  9. JATORIVIL (ALL OTHER THERAPEUTIC PRODUCTS) [Concomitant]

REACTIONS (1)
  - Neuralgic amyotrophy [None]
